FAERS Safety Report 24143614 (Version 1)
Quarter: 2024Q3

REPORT INFORMATION
  Report Type: Report from Study
  Country: US (occurrence: US)
  Receive Date: 20240727
  Receipt Date: 20240727
  Transmission Date: 20241017
  Serious: Yes (Hospitalization, Other)
  Sender: ABBVIE
  Company Number: US-ABBVIE-5851938

PATIENT
  Sex: Female

DRUGS (1)
  1. RINVOQ [Suspect]
     Active Substance: UPADACITINIB
     Indication: Psoriatic arthropathy
     Route: 048
     Dates: start: 20220202

REACTIONS (6)
  - Loss of consciousness [Recovering/Resolving]
  - Hepatic cyst [Unknown]
  - Pain [Recovering/Resolving]
  - Cyst [Unknown]
  - Haemorrhage [Unknown]
  - Neoplasm malignant [Unknown]
